FAERS Safety Report 4812145-2 (Version None)
Quarter: 2005Q4

REPORT INFORMATION
  Report Type: 
  Country: None (occurrence: None)
  Receive Date: 20051028
  Receipt Date: 20040825
  Transmission Date: 20060501
  Serious: No
  Sender: FDA-Public Use
  Company Number: US-GLAXOSMITHKLINE-A0523675A

PATIENT
  Sex: Male

DRUGS (7)
  1. ADVAIR DISKUS 100/50 [Suspect]
     Indication: DRUG USE FOR UNKNOWN INDICATION
     Dosage: 1PUFF TWICE PER DAY
     Route: 055
  2. NASONEX [Concomitant]
  3. COMBIVENT [Concomitant]
  4. DIAZEPAM [Concomitant]
  5. PIROXICAM [Concomitant]
  6. BUPROPION HCL [Concomitant]
  7. HYDROCODONE [Concomitant]

REACTIONS (1)
  - DRY MOUTH [None]
